FAERS Safety Report 9791246 (Version 2)
Quarter: 2014Q1

REPORT INFORMATION
  Report Type: Spontaneous
  Country: US (occurrence: US)
  Receive Date: 20140101
  Receipt Date: 20140108
  Transmission Date: 20141002
  Serious: Yes (Hospitalization)
  Sender: FDA-Public Use
  Company Number: US-BIOGENIDEC-2013BI123665

PATIENT
  Age: 64 Year
  Sex: Female

DRUGS (25)
  1. AVONEX [Suspect]
     Indication: MULTIPLE SCLEROSIS
     Route: 030
  2. AVONEX [Suspect]
     Indication: MULTIPLE SCLEROSIS
     Route: 030
     Dates: start: 20100114
  3. ASTELIN [Concomitant]
  4. BACLOFEN [Concomitant]
  5. CELLCEPT [Concomitant]
  6. NE HCL CHILDREN [Concomitant]
  7. FLUTICASONE PROPIONATE [Concomitant]
  8. FUROSEMIDE [Concomitant]
  9. GABAPENTIN [Concomitant]
  10. GLYBURIDE MICRONIZED [Concomitant]
  11. LISINOPRIL [Concomitant]
  12. MECLIZINE HCL [Concomitant]
  13. MELOXICAM [Concomitant]
  14. METFORMIN HCL [Concomitant]
  15. NITROFURANTOIN MACROCRYSTAL [Concomitant]
  16. NORVASC [Concomitant]
  17. OXYCODONE HCL [Concomitant]
  18. PERCOCET [Concomitant]
  19. POTASSIUM ACETATE [Concomitant]
  20. PREDNISONE [Concomitant]
  21. SENNA LAXATIVE [Concomitant]
  22. SIMVASTATIN [Concomitant]
  23. SINGULAIR [Concomitant]
  24. VENLAFAXINE HCL [Concomitant]
  25. VITAMIN B COMPLEX [Concomitant]

REACTIONS (3)
  - Hypertension [Unknown]
  - Feeling jittery [Unknown]
  - Psychomotor hyperactivity [Unknown]
